FAERS Safety Report 7292417-5 (Version None)
Quarter: 2011Q1

REPORT INFORMATION
  Report Type: 
  Country: None (occurrence: None)
  Receive Date: 20110215
  Receipt Date: 20110209
  Transmission Date: 20110831
  Serious: Yes (Other)
  Sender: FDA-Public Use
  Company Number: US-PFIZER INC-2010059191

PATIENT
  Sex: Female
  Weight: 68.03 kg

DRUGS (3)
  1. ADDERALL 10 [Concomitant]
     Indication: ATTENTION DEFICIT/HYPERACTIVITY DISORDER
     Dosage: UNK
  2. PRISTIQ [Suspect]
     Indication: DEPRESSION
     Dosage: 50 MG, DAILY
     Dates: start: 20100420
  3. ZOLOFT [Suspect]
     Indication: DEPRESSION
     Dosage: UNK
     Dates: end: 20100401

REACTIONS (8)
  - DRY MOUTH [None]
  - DECREASED APPETITE [None]
  - WEIGHT DECREASED [None]
  - WEIGHT INCREASED [None]
  - AGITATION [None]
  - DRUG INEFFECTIVE [None]
  - DIZZINESS [None]
  - NAUSEA [None]
